FAERS Safety Report 10008785 (Version 1)
Quarter: 2014Q1

REPORT INFORMATION
  Report Type: Spontaneous
  Country: US (occurrence: US)
  Receive Date: 20140312
  Receipt Date: 20140312
  Transmission Date: 20141002
  Serious: No
  Sender: FDA-Public Use
  Company Number: US-INCYTE CORPORATION-2012IN000550

PATIENT
  Age: 69 Year
  Sex: Female

DRUGS (13)
  1. JAKAFI [Suspect]
     Indication: MYELOFIBROSIS
     Dosage: 10 MG, IN THE AM
     Route: 048
  2. JAKAFI [Suspect]
     Dosage: 15 MG, IN PM
     Route: 048
  3. LOPRESSOR [Concomitant]
  4. PLAQUENIL [Concomitant]
  5. PREDNISONE [Concomitant]
  6. PRILOSEC [Concomitant]
  7. HYDROCHLOROTHIAZIDE [Concomitant]
  8. DATRIL [Concomitant]
  9. CALCIUM [Concomitant]
  10. SINGULAIR [Concomitant]
  11. ASPIRIN [Concomitant]
     Dosage: 325 MG, UNK
  12. FEMARA [Concomitant]
  13. TYLENOL [Concomitant]

REACTIONS (6)
  - Tremor [Unknown]
  - Diarrhoea [Unknown]
  - Pyrexia [Unknown]
  - Chills [Unknown]
  - Fatigue [Unknown]
  - Asthenia [Unknown]
